FAERS Safety Report 21480032 (Version 3)
Quarter: 2022Q4

REPORT INFORMATION
  Report Type: Report from Study
  Country: NL (occurrence: NL)
  Receive Date: 20221019
  Receipt Date: 20221128
  Transmission Date: 20230113
  Serious: Yes (Hospitalization)
  Sender: FDA-Public Use
  Company Number: NL-GILEAD-2022-0601559

PATIENT
  Age: 65 Year
  Sex: Male
  Weight: 79 kg

DRUGS (51)
  1. BREXUCABTAGENE AUTOLEUCEL [Suspect]
     Active Substance: BREXUCABTAGENE AUTOLEUCEL
     Indication: Mantle cell lymphoma
     Dosage: 68
     Route: 042
     Dates: start: 20220830, end: 20220830
  2. FLUDARABINE [Suspect]
     Active Substance: FLUDARABINE PHOSPHATE
     Indication: Bone marrow conditioning regimen
     Dosage: 60
     Route: 065
     Dates: start: 20220825, end: 20220827
  3. CYCLOPHOSPHAMIDE [Suspect]
     Active Substance: CYCLOPHOSPHAMIDE
     Indication: Bone marrow conditioning regimen
     Dosage: 1005
     Route: 065
     Dates: start: 20220825, end: 20220827
  4. MESNA [Suspect]
     Active Substance: MESNA
     Indication: Bone marrow conditioning regimen
     Dosage: 100
     Route: 065
     Dates: start: 20220825, end: 20220825
  5. MESNA [Suspect]
     Active Substance: MESNA
     Dosage: 900
     Route: 065
     Dates: start: 20220825, end: 20220826
  6. MESNA [Suspect]
     Active Substance: MESNA
     Dosage: 1010
     Route: 065
     Dates: start: 20220826, end: 20220828
  7. CYTARABINE [Suspect]
     Active Substance: CYTARABINE
     Indication: Bone marrow conditioning regimen
     Dosage: 2010
     Route: 065
     Dates: start: 20220804, end: 20220805
  8. VALACYCLOVIR HYDROCHLORIDE [Concomitant]
     Active Substance: VALACYCLOVIR HYDROCHLORIDE
     Dosage: 500,MG,TWICE DAILY
     Route: 048
     Dates: start: 20220831, end: 20220922
  9. VALACYCLOVIR HYDROCHLORIDE [Concomitant]
     Active Substance: VALACYCLOVIR HYDROCHLORIDE
     Dosage: 500,MG,TWICE DAILY
     Route: 048
     Dates: start: 20220924
  10. SULFAMETHOXAZOLE\TRIMETHOPRIM [Concomitant]
     Active Substance: SULFAMETHOXAZOLE\TRIMETHOPRIM
     Dosage: 480,MG,DAILY
     Route: 048
     Dates: start: 20220906, end: 20220922
  11. SULFAMETHOXAZOLE\TRIMETHOPRIM [Concomitant]
     Active Substance: SULFAMETHOXAZOLE\TRIMETHOPRIM
     Dosage: 480 MG, QD
     Dates: start: 20220924
  12. CIPROFLOXACIN [Concomitant]
     Active Substance: CIPROFLOXACIN
     Dosage: 400,MG,TWICE DAILY
     Route: 042
     Dates: start: 20220906, end: 20220914
  13. CIPROFLOXACIN [Concomitant]
     Active Substance: CIPROFLOXACIN
     Dosage: 500,MG,TWICE DAILY
     Route: 048
     Dates: start: 20220914, end: 20220924
  14. LEVETIRACETAM [Concomitant]
     Active Substance: LEVETIRACETAM
     Dosage: 750,MG,TWICE DAILY
     Route: 042
     Dates: start: 20220907, end: 20220915
  15. LEVETIRACETAM [Concomitant]
     Active Substance: LEVETIRACETAM
     Dosage: 750,MG,TWICE DAILY
     Route: 048
     Dates: start: 20220915, end: 20220929
  16. LEVETIRACETAM [Concomitant]
     Active Substance: LEVETIRACETAM
     Dosage: 500,MG,TWICE DAILY
     Route: 048
     Dates: start: 20220930, end: 20221003
  17. RIBAVARIN [Concomitant]
     Active Substance: RIBAVIRIN
     Dosage: 600,MG,TWICE DAILY
     Route: 048
     Dates: start: 20220908, end: 20220918
  18. POSACONAZOLE [Concomitant]
     Active Substance: POSACONAZOLE
     Dosage: 300,MG,DAILY
     Route: 048
     Dates: start: 20220908
  19. FUROSEMIDE [Concomitant]
     Active Substance: FUROSEMIDE
     Dosage: 40,MG,DAILY
     Route: 042
     Dates: start: 20220911, end: 20220913
  20. FUROSEMIDE [Concomitant]
     Active Substance: FUROSEMIDE
     Dosage: 40,MG,DAILY
     Route: 048
     Dates: start: 20220916, end: 20220924
  21. DEXAMETHASONE [Concomitant]
     Active Substance: DEXAMETHASONE
     Dosage: 10,MG,DAILY
     Route: 042
     Dates: start: 20220912, end: 20220914
  22. DEXAMETHASONE [Concomitant]
     Active Substance: DEXAMETHASONE
     Dosage: 5,MG,ONCE
     Route: 048
     Dates: start: 20220915, end: 20220915
  23. DEXAMETHASONE [Concomitant]
     Active Substance: DEXAMETHASONE
     Dosage: 10,MG,TWICE DAILY
     Route: 048
     Dates: start: 20220916, end: 20220916
  24. DEXAMETHASONE [Concomitant]
     Active Substance: DEXAMETHASONE
     Dosage: 10,MG,DAILY
     Route: 048
     Dates: start: 20220917, end: 20220919
  25. DEXAMETHASONE [Concomitant]
     Active Substance: DEXAMETHASONE
     Dosage: 4,MG,ONCE
     Route: 048
     Dates: start: 20220920, end: 20220920
  26. PLATELETS [Concomitant]
     Active Substance: HUMAN PLATELET, ALLOGENIC
     Dosage: 280,ML,ONCE
     Route: 042
     Dates: start: 20220913, end: 20220913
  27. PLATELETS [Concomitant]
     Active Substance: HUMAN PLATELET, ALLOGENIC
     Dosage: 316.35,ML,ONCE
     Route: 042
     Dates: start: 20220918, end: 20220918
  28. PLATELETS [Concomitant]
     Active Substance: HUMAN PLATELET, ALLOGENIC
     Dosage: 420,ML,ONCE
     Route: 042
     Dates: start: 20220924, end: 20220924
  29. PLATELETS [Concomitant]
     Active Substance: HUMAN PLATELET, ALLOGENIC
     Dosage: 261.75,ML,ONCE
     Route: 042
     Dates: start: 20220928, end: 20220928
  30. TEMAZEPAM [Concomitant]
     Active Substance: TEMAZEPAM
     Dosage: 10,MG,ONCE
     Route: 048
     Dates: start: 20220915, end: 20220915
  31. CEFAZOLIN [Concomitant]
     Active Substance: CEFAZOLIN
     Dosage: 1000,MG,THREE TIMES DAILY
     Route: 042
     Dates: start: 20220916, end: 20220924
  32. AMINO ACIDS\DEXTROSE\ELECTROLYTES NOS\SOYBEAN OIL [Concomitant]
     Active Substance: AMINO ACIDS\DEXTROSE\ELECTROLYTES NOS\SOYBEAN OIL
     Dosage: 1500,ML,DAILY
     Route: 042
     Dates: start: 20220916, end: 20220920
  33. HUMAN RED BLOOD CELL [Concomitant]
     Active Substance: HUMAN RED BLOOD CELL
     Dosage: 523,ML,ONCE
     Route: 042
     Dates: start: 20220917, end: 20220917
  34. HUMAN RED BLOOD CELL [Concomitant]
     Active Substance: HUMAN RED BLOOD CELL
     Dosage: 392,ML,ONCE
     Route: 042
     Dates: start: 20220918, end: 20220918
  35. HUMAN RED BLOOD CELL [Concomitant]
     Active Substance: HUMAN RED BLOOD CELL
     Dosage: 529,ML,ONCE
     Route: 042
     Dates: start: 20220930, end: 20220930
  36. HUMAN RED BLOOD CELL [Concomitant]
     Active Substance: HUMAN RED BLOOD CELL
     Dosage: 97,ML,ONCE
     Route: 042
     Dates: start: 20221003, end: 20221003
  37. PANTOPRAZOLE [Concomitant]
     Active Substance: PANTOPRAZOLE
     Dosage: 80,MG,THREE TIMES DAILY
     Route: 042
     Dates: start: 20220918, end: 20220918
  38. PANTOPRAZOLE [Concomitant]
     Active Substance: PANTOPRAZOLE
     Dosage: 40,MG,TWICE DAILY
     Route: 042
     Dates: start: 20220919, end: 20220919
  39. PANTOPRAZOLE [Concomitant]
     Active Substance: PANTOPRAZOLE
     Dosage: 80,MG,TWICE DAILY
     Route: 042
     Dates: start: 20220920, end: 20220920
  40. PANTOPRAZOLE [Concomitant]
     Active Substance: PANTOPRAZOLE
     Dosage: 40,MG,ONCE
     Route: 042
     Dates: start: 20220921, end: 20220921
  41. PANTOPRAZOLE [Concomitant]
     Active Substance: PANTOPRAZOLE
     Dosage: 40,MG,DAILY
     Route: 048
     Dates: start: 20220921
  42. FILGRASTIM [Concomitant]
     Active Substance: FILGRASTIM
     Dosage: 300,UG,ONCE
     Route: 058
     Dates: start: 20220927, end: 20220927
  43. FILGRASTIM [Concomitant]
     Active Substance: FILGRASTIM
     Dosage: 300,UG,DAILY
     Route: 058
     Dates: start: 20220929
  44. POTASSIUM CHLORIDE [Concomitant]
     Active Substance: POTASSIUM CHLORIDE
     Dosage: 1200,MG,THREE TIMES DAILY
     Route: 048
     Dates: start: 20220929, end: 20221003
  45. ELTROMBOPAG [Concomitant]
     Active Substance: ELTROMBOPAG
     Dosage: 150,MG,DAILY
     Route: 048
     Dates: start: 20220929
  46. CEFTAZIDIME [Concomitant]
     Active Substance: CEFTAZIDIME
     Dosage: 2000,MG,THREE TIMES DAILY
     Route: 042
     Dates: start: 20220929, end: 20221003
  47. CEFTAZIDIME [Concomitant]
     Active Substance: CEFTAZIDIME
     Dosage: 2000,MG,THREE TIMES DAILY
     Route: 042
     Dates: start: 20221013
  48. DARBEPOETIN ALFA [Concomitant]
     Active Substance: DARBEPOETIN ALFA
     Dosage: 500,UG,OTHER
     Route: 058
     Dates: start: 20221011
  49. CLEMASTINE [Concomitant]
     Active Substance: CLEMASTINE
     Dosage: 2,MG,DAILY
     Route: 042
     Dates: start: 20221011, end: 20221012
  50. PREDNISOLONE SODIUM SUCCINATE [Concomitant]
     Active Substance: PREDNISOLONE SODIUM SUCCINATE
     Dosage: 25,MG,ONCE
     Route: 042
     Dates: start: 20221011, end: 20221011
  51. ACETAMINOPHEN [Concomitant]
     Active Substance: ACETAMINOPHEN
     Dosage: 1000,MG,ONCE
     Route: 042
     Dates: start: 20221013, end: 20221013

REACTIONS (1)
  - Parainfluenzae virus infection [Recovered/Resolved]

NARRATIVE: CASE EVENT DATE: 20221013
